FAERS Safety Report 12193633 (Version 2)
Quarter: 2016Q2

REPORT INFORMATION
  Report Type: Spontaneous
  Country: US (occurrence: US)
  Receive Date: 20160321
  Receipt Date: 20160404
  Transmission Date: 20160815
  Serious: Yes (Death, Other)
  Sender: FDA-Public Use
  Company Number: US-ROCHE-1727379

PATIENT
  Age: 46 Year
  Sex: Female

DRUGS (2)
  1. RITUXAN [Suspect]
     Active Substance: RITUXIMAB
     Indication: PRODUCT USED FOR UNKNOWN INDICATION
     Route: 042
     Dates: start: 20160120
  2. RITUXAN [Suspect]
     Active Substance: RITUXIMAB
     Route: 042
     Dates: start: 20160203

REACTIONS (6)
  - Multiple sclerosis [Fatal]
  - Visual field defect [Unknown]
  - Pollakiuria [Unknown]
  - Mental status changes [Fatal]
  - Confusional state [Unknown]
  - Failure to thrive [Unknown]

NARRATIVE: CASE EVENT DATE: 20160203
